FAERS Safety Report 9549584 (Version 1)
Quarter: 2013Q3

REPORT INFORMATION
  Report Type: Spontaneous
  Country: US (occurrence: US)
  Receive Date: 20130924
  Receipt Date: 20130924
  Transmission Date: 20140515
  Serious: Yes (Other)
  Sender: FDA-Public Use
  Company Number: US-009507513-1207USA012275

PATIENT
  Age: 25 Year
  Sex: Male

DRUGS (7)
  1. SINGULAIR [Suspect]
     Route: 048
  2. TRIAMCINOLONE ACETONIDE [Suspect]
  3. BUDESONIDE [Suspect]
  4. TERBUTALINE SULFATE [Suspect]
  5. FORMOTEROL FUMARATE [Suspect]
  6. ALPRAZOLAM [Concomitant]
  7. CETIRIZINE HYDROCHLORIDE [Concomitant]

REACTIONS (2)
  - Insomnia [Unknown]
  - Aggression [Unknown]
